FAERS Safety Report 9455413 (Version 2)
Quarter: 2013Q3

REPORT INFORMATION
  Report Type: Report from Study
  Country: US (occurrence: US)
  Receive Date: 20130813
  Receipt Date: 20130823
  Transmission Date: 20140515
  Serious: Yes (Death, Other)
  Sender: FDA-Public Use
  Company Number: PHEH2013US016999

PATIENT
  Age: 61 Year
  Sex: Female
  Weight: 63.5 kg

DRUGS (1)
  1. CLOZARIL [Suspect]
     Indication: SCHIZOAFFECTIVE DISORDER
     Dosage: 500 MG, QD
     Route: 048
     Dates: start: 1996

REACTIONS (13)
  - Multi-organ failure [Fatal]
  - Renal failure [Fatal]
  - Hypophagia [Fatal]
  - Fall [Unknown]
  - Lower limb fracture [Unknown]
  - Catatonia [Unknown]
  - Sepsis [Unknown]
  - Ileus [Unknown]
  - Small intestinal obstruction [Unknown]
  - Anaemia [Unknown]
  - White blood cell count increased [Unknown]
  - Pyrexia [Unknown]
  - Tachycardia [Unknown]
